FAERS Safety Report 8922655 (Version 4)
Quarter: 2013Q1

REPORT INFORMATION
  Report Type: Spontaneous
  Country: US (occurrence: US)
  Receive Date: 20121123
  Receipt Date: 20130104
  Transmission Date: 20140127
  Serious: Yes (Hospitalization)
  Sender: FDA-Public Use
  Company Number: US-PFIZER INC-2012290368

PATIENT
  Age: 67 Year
  Sex: Female
  Weight: 68 kg

DRUGS (3)
  1. PREMARIN VAGINAL CREAM [Suspect]
     Indication: ATROPHIC VULVOVAGINITIS
     Dosage: 2 G, 3X/WEEK
     Route: 067
     Dates: start: 2005
  2. PREMARIN VAGINAL CREAM [Suspect]
     Dosage: 0.625 MG, 3X/WEEK
     Route: 067
  3. ATENOLOL [Concomitant]
     Indication: HYPERTENSION
     Dosage: 50 MG, 2X/DAY

REACTIONS (1)
  - Spinal disorder [Unknown]
